FAERS Safety Report 7956275-5 (Version None)
Quarter: 2011Q4

REPORT INFORMATION
  Report Type: 
  Country: None (occurrence: None)
  Receive Date: 20111109
  Receipt Date: 20111026
  Transmission Date: 20120403
  Serious: Yes (Hospitalization)
  Sender: FDA-Public Use
  Company Number: 2011PROUSAUSA00682

PATIENT
  Age: 71 Year
  Sex: Male
  Weight: 80.7 kg

DRUGS (5)
  1. PROVENGE [Suspect]
     Indication: PROSTATE CANCER METASTATIC
     Dosage: 250 ML, SINGLE, INTRAVENOUS
     Route: 042
     Dates: start: 20110818, end: 20110818
  2. KEPPRA [Concomitant]
  3. ACETAMINOPHEN AND HYDROCODONE BITARTRATE [Concomitant]
  4. PROVENGE [Suspect]
     Dosage: 250 ML, SINGLE, INTRAVENOUS
     Route: 042
     Dates: start: 20110922, end: 20110922
  5. CHOLECALCIFEROL (COLECALCIFEROL) [Concomitant]

REACTIONS (4)
  - CONFUSIONAL STATE [None]
  - HAEMATURIA [None]
  - PYREXIA [None]
  - BLOOD COUNT ABNORMAL [None]
